FAERS Safety Report 18650254 (Version 1)
Quarter: 2020Q4

REPORT INFORMATION
  Report Type: Spontaneous
  Country: HU (occurrence: HU)
  Receive Date: 20201222
  Receipt Date: 20201222
  Transmission Date: 20210114
  Serious: Yes (Hospitalization)
  Sender: FDA-Public Use
  Company Number: HU-ELI_LILLY_AND_COMPANY-HU202012008537

PATIENT
  Age: 30 Year
  Sex: Female

DRUGS (1)
  1. VERZENIOS 150MG [Suspect]
     Active Substance: ABEMACICLIB
     Indication: BREAST CANCER
     Dosage: 150 MG, BID
     Route: 065

REACTIONS (3)
  - Diarrhoea [Unknown]
  - Bone marrow disorder [Unknown]
  - Pancytopenia [Unknown]
